FAERS Safety Report 13094619 (Version 1)
Quarter: 2017Q1

REPORT INFORMATION
  Report Type: Spontaneous
  Country: US (occurrence: US)
  Receive Date: 20170106
  Receipt Date: 20170106
  Transmission Date: 20170428
  Serious: No
  Sender: FDA-Public Use
  Company Number: US-ELI_LILLY_AND_COMPANY-US201612009121

PATIENT
  Sex: Female

DRUGS (6)
  1. ZYPREXA [Suspect]
     Active Substance: OLANZAPINE
     Indication: ANXIETY
  2. KLONOPIN [Concomitant]
     Active Substance: CLONAZEPAM
  3. ZYPREXA [Suspect]
     Active Substance: OLANZAPINE
     Indication: PANIC DISORDER
  4. PAROXETINE. [Concomitant]
     Active Substance: PAROXETINE
  5. ZYPREXA [Suspect]
     Active Substance: OLANZAPINE
     Indication: DEPRESSION
     Dosage: 2.5 MG, QD
     Route: 065
     Dates: start: 200208
  6. PAXIL [Concomitant]
     Active Substance: PAROXETINE HYDROCHLORIDE

REACTIONS (2)
  - Bronchitis [Unknown]
  - Torticollis [Unknown]
